FAERS Safety Report 5627064-1 (Version None)
Quarter: 2008Q1

REPORT INFORMATION
  Report Type: 
  Country: None (occurrence: None)
  Receive Date: 20080116
  Receipt Date: 20070111
  Transmission Date: 20080703
  Serious: Yes (Death)
  Sender: FDA-Public Use
  Company Number: BDI-009010

PATIENT
  Age: 82 Year
  Sex: Male
  Weight: 100 kg

DRUGS (3)
  1. PROHANCE [Suspect]
     Indication: NUCLEAR MAGNETIC RESONANCE IMAGING
     Dosage: 20 ML ONCE IV
     Route: 042
     Dates: start: 20070108, end: 20070108
  2. LASIX SPECIAL [Concomitant]
  3. EASPRIN [Concomitant]

REACTIONS (3)
  - CARDIAC ARREST [None]
  - CHEST PAIN [None]
  - PULSE ABSENT [None]
